APPROVED DRUG PRODUCT: LETROZOLE
Active Ingredient: LETROZOLE
Strength: 2.5MG
Dosage Form/Route: TABLET;ORAL
Application: A205869 | Product #001 | TE Code: AB
Applicant: BEIJING YILING BIO-ENGINEERING TECHNOLOGY CO LTD
Approved: Nov 14, 2018 | RLD: No | RS: No | Type: RX